FAERS Safety Report 9429490 (Version 1)
Quarter: 2013Q3

REPORT INFORMATION
  Report Type: Spontaneous
  Country: US (occurrence: US)
  Receive Date: 20130730
  Receipt Date: 20130730
  Transmission Date: 20140515
  Serious: No
  Sender: FDA-Public Use
  Company Number: US-ABBOTT-13P-163-1061337-00

PATIENT
  Age: 70 Year
  Sex: Male
  Weight: 86.26 kg

DRUGS (9)
  1. NIASPAN (COATED) [Suspect]
     Indication: HIGH DENSITY LIPOPROTEIN DECREASED
     Dates: start: 20130228
  2. NIASPAN (COATED) [Suspect]
     Indication: LOW DENSITY LIPOPROTEIN INCREASED
  3. NIASPAN (COATED) [Suspect]
     Indication: BLOOD TRIGLYCERIDES INCREASED
  4. TRIAJENTA [Concomitant]
     Indication: DIABETES MELLITUS
  5. AVAPRO [Concomitant]
     Indication: HYPERTENSION
  6. ALLOPURINOL [Concomitant]
     Indication: RENAL DISORDER
  7. HYDROCHLOROTHIAZIDE [Concomitant]
     Indication: FLUID RETENTION
  8. MULTIVITAMIN [Concomitant]
     Indication: VITAMIN SUPPLEMENTATION
  9. BABY ASPIRIN [Concomitant]
     Indication: PROPHYLAXIS

REACTIONS (1)
  - Blood glucose increased [Not Recovered/Not Resolved]
